FAERS Safety Report 9989359 (Version 2)
Quarter: 2014Q2

REPORT INFORMATION
  Report Type: Spontaneous
  Country: US (occurrence: US)
  Receive Date: 20140310
  Receipt Date: 20140425
  Transmission Date: 20141212
  Serious: Yes (Other)
  Sender: FDA-Public Use
  Company Number: US-SA-2014SA025391

PATIENT
  Age: 58 Year
  Sex: Female
  Weight: 74 kg

DRUGS (3)
  1. HECTOROL [Suspect]
     Indication: HYPERPARATHYROIDISM SECONDARY
     Route: 042
     Dates: start: 20140110, end: 20140120
  2. EPOGEN [Concomitant]
     Indication: ANAEMIA
     Dosage: DOSE:2600 UNIT(S)
     Route: 065
     Dates: start: 20121026, end: 20131025
  3. VENOFER [Concomitant]
     Indication: ANAEMIA
     Route: 065
     Dates: start: 20121026

REACTIONS (2)
  - Dyspnoea [Recovered/Resolved]
  - Cold sweat [Recovered/Resolved]
